FAERS Safety Report 8922909 (Version 1)
Quarter: 2012Q4

REPORT INFORMATION
  Report Type: 
  Country: FR (occurrence: FR)
  Receive Date: 20121125
  Receipt Date: 20121125
  Transmission Date: 20130627
  Serious: Yes (Hospitalization)
  Sender: FDA-Public Use
  Company Number: FR-CELGENEUS-056-50794-12111535

PATIENT
  Age: 67 Year
  Sex: Female

DRUGS (1)
  1. VIDAZA [Suspect]
     Indication: DRUG USE FOR UNKNOWN INDICATION
     Dosage: 75 milligram/sq. meter
     Route: 058
     Dates: start: 20121008, end: 20121009

REACTIONS (4)
  - Loss of consciousness [Recovered/Resolved with Sequelae]
  - Clonus [Recovered/Resolved]
  - Amnesia [Not Recovered/Not Resolved]
  - Rash erythematous [Recovering/Resolving]
